FAERS Safety Report 8493121-8 (Version None)
Quarter: 2012Q2

REPORT INFORMATION
  Report Type: 
  Country: None (occurrence: None)
  Receive Date: 20120627
  Receipt Date: 20110729
  Transmission Date: 20120825
  Serious: No
  Sender: FDA-Public Use
  Company Number: WAES 1107USA02815

PATIENT
  Age: 56 Year
  Sex: Female
  Weight: 107.0489 kg

DRUGS (1)
  1. JANUVIA [Suspect]
     Indication: DIABETES MELLITUS
     Dosage: 100 MG/DAILY/PO
     Route: 048
     Dates: end: 20110620

REACTIONS (3)
  - DECREASED APPETITE [None]
  - NAUSEA [None]
  - DIARRHOEA [None]
